FAERS Safety Report 7700410-0 (Version None)
Quarter: 2011Q3

REPORT INFORMATION
  Report Type: 
  Country: None (occurrence: None)
  Receive Date: 20110822
  Receipt Date: 20110808
  Transmission Date: 20111222
  Serious: Yes (Hospitalization, Other)
  Sender: FDA-Public Use
  Company Number: CA-ELI_LILLY_AND_COMPANY-CA201108002914

PATIENT
  Age: 78 Year
  Sex: Female

DRUGS (6)
  1. FORTEO [Suspect]
     Indication: OSTEOPOROSIS
     Dosage: 20 UG, QD
     Route: 058
     Dates: start: 20100111
  2. GABAPENTIN [Concomitant]
  3. PANTOLOC                           /01263202/ [Concomitant]
  4. CITALOPRAM [Concomitant]
  5. DILAUDID [Concomitant]
  6. OMEPRAZOLE [Concomitant]

REACTIONS (3)
  - VASCULAR GRAFT [None]
  - PAIN IN EXTREMITY [None]
  - AMPUTATION [None]
